FAERS Safety Report 5735600-X (Version None)
Quarter: 2008Q2

REPORT INFORMATION
  Report Type: 
  Country: None (occurrence: None)
  Receive Date: 20080508
  Receipt Date: 20080430
  Transmission Date: 20081010
  Serious: Yes (Hospitalization)
  Sender: FDA-Public Use
  Company Number: WAES 0804DEU00053

PATIENT
  Age: 76 Year
  Sex: Female

DRUGS (6)
  1. COZAAR [Suspect]
     Indication: CARDIAC FAILURE CONGESTIVE
     Dosage: PO
     Route: 048
     Dates: start: 20031118, end: 20080327
  2. SPIRONOLACTONE [Suspect]
     Indication: CARDIAC FAILURE CONGESTIVE
     Dates: start: 20041111, end: 20080327
  3. BISOPROLOL FUMARATE [Concomitant]
  4. DIGITOXIN TAB [Concomitant]
  5. HYDROCHLOROTHIAZIDE [Concomitant]
  6. PHENPROCOUMON [Concomitant]

REACTIONS (5)
  - ANXIETY [None]
  - DEMENTIA [None]
  - HYPERKALAEMIA [None]
  - HYPONATRAEMIA [None]
  - PALPITATIONS [None]
